FAERS Safety Report 8359894-X (Version None)
Quarter: 2012Q2

REPORT INFORMATION
  Report Type: 
  Country: None (occurrence: None)
  Receive Date: 20120515
  Receipt Date: 20120503
  Transmission Date: 20120825
  Serious: Yes (Other)
  Sender: FDA-Public Use
  Company Number: US-PFIZER INC-2012115685

PATIENT
  Sex: Male
  Weight: 99.8 kg

DRUGS (7)
  1. VALIUM [Suspect]
     Dosage: 10 MG, 3X/DAY
  2. SOMA [Suspect]
     Dosage: 350 MG, 3X/DAY
  3. PERCOCET [Suspect]
     Dosage: UNK
  4. LYRICA [Suspect]
     Indication: SPINAL DISORDER
     Dosage: 300 MG, 2X/DAY
     Route: 048
     Dates: start: 20050101, end: 20120401
  5. LYRICA [Suspect]
     Dosage: 300 MG, 2X/DAY
     Route: 048
     Dates: start: 20120401
  6. ELAVIL [Suspect]
     Dosage: UNK
  7. MS CONTIN [Suspect]
     Dosage: 60 MG, UNK

REACTIONS (3)
  - DRY MOUTH [None]
  - BLOOD CHOLESTEROL INCREASED [None]
  - TOXICITY TO VARIOUS AGENTS [None]
